FAERS Safety Report 25345134 (Version 1)
Quarter: 2025Q2

REPORT INFORMATION
  Report Type: Spontaneous
  Country: US (occurrence: US)
  Receive Date: 20250522
  Receipt Date: 20250522
  Transmission Date: 20250717
  Serious: Yes (Hospitalization)
  Sender: GRIFOLS
  Company Number: US-IGSA-BIG0035329

PATIENT
  Age: 84 Year
  Sex: Male

DRUGS (1)
  1. HUMAN IMMUNOGLOBULIN G [Suspect]
     Active Substance: HUMAN IMMUNOGLOBULIN G
     Indication: Chronic inflammatory demyelinating polyradiculoneuropathy
     Dosage: UNK UNKNOWN, Q.2WK.
     Route: 042
     Dates: start: 2015, end: 2025

REACTIONS (10)
  - Syncope [Unknown]
  - Loss of consciousness [Unknown]
  - Bifascicular block [Unknown]
  - Bradycardia [Unknown]
  - Renal impairment [Unknown]
  - Dizziness [Unknown]
  - Hyperhidrosis [Unknown]
  - Dyspnoea [Unknown]
  - Fatigue [Unknown]
  - Pallor [Unknown]
